FAERS Safety Report 25110491 (Version 1)
Quarter: 2025Q1

REPORT INFORMATION
  Report Type: Spontaneous
  Country: US (occurrence: US)
  Receive Date: 20250324
  Receipt Date: 20250324
  Transmission Date: 20250408
  Serious: Yes (Death, Hospitalization, Other)
  Sender: RISING PHARMACEUTICALS
  Company Number: US-RISINGPHARMA-US-2025RISLIT00138

PATIENT
  Age: 5 Decade
  Weight: 54 kg

DRUGS (3)
  1. DIGOXIN [Suspect]
     Active Substance: DIGOXIN
     Indication: Product used for unknown indication
     Route: 048
  2. ACETAMINOPHEN AND CODEINE [Suspect]
     Active Substance: ACETAMINOPHEN\CODEINE PHOSPHATE
     Indication: Product used for unknown indication
     Route: 065
  3. ALCOHOL [Suspect]
     Active Substance: ALCOHOL
     Indication: Product used for unknown indication
     Route: 065

REACTIONS (8)
  - Tachycardia [Fatal]
  - Toxicity to various agents [Fatal]
  - Blood pressure increased [Fatal]
  - Ventricular fibrillation [Fatal]
  - Electrocardiogram ST segment depression [Fatal]
  - Cardiac arrest [Fatal]
  - Atrioventricular block first degree [Fatal]
  - Overdose [Unknown]
